FAERS Safety Report 15152508 (Version 1)
Quarter: 2018Q3

REPORT INFORMATION
  Report Type: Report from Study
  Country: None (occurrence: US)
  Receive Date: 20180717
  Receipt Date: 20180717
  Transmission Date: 20181010
  Serious: Yes (Death)
  Sender: FDA-Public Use
  Company Number: US-BAUSCH-BL-2018-019508

PATIENT
  Sex: Female

DRUGS (2)
  1. XENAZINE [Suspect]
     Active Substance: TETRABENAZINE
     Indication: OFF LABEL USE
  2. XENAZINE [Suspect]
     Active Substance: TETRABENAZINE
     Indication: CROHN^S DISEASE
     Dosage: 1/2 TAB ONCE IN MORNING AND 1 TAB ONCE IN EVENING
     Route: 048
     Dates: start: 201803, end: 2018

REACTIONS (2)
  - Off label use [Recovered/Resolved]
  - Death [Fatal]

NARRATIVE: CASE EVENT DATE: 2018
